FAERS Safety Report 23551544 (Version 1)
Quarter: 2024Q1

REPORT INFORMATION
  Report Type: Spontaneous
  Country: FR (occurrence: FR)
  Receive Date: 20240222
  Receipt Date: 20240222
  Transmission Date: 20240410
  Serious: Yes (Hospitalization)
  Sender: FDA-Public Use
  Company Number: None

PATIENT
  Age: 63 Year
  Sex: Female
  Weight: 66 kg

DRUGS (4)
  1. OXCARBAZEPINE [Suspect]
     Active Substance: OXCARBAZEPINE
     Indication: Schizoaffective disorder bipolar type
     Dosage: 600 MG, QD (2 FOIS 300 MG / JOUR)
     Route: 048
     Dates: start: 20220810, end: 20220811
  2. OXCARBAZEPINE [Suspect]
     Active Substance: OXCARBAZEPINE
     Dosage: 900 MG, QD (3 FOIS 300 MG / JOUR)
     Route: 048
     Dates: start: 20220811, end: 20220816
  3. OXCARBAZEPINE [Suspect]
     Active Substance: OXCARBAZEPINE
     Dosage: 1200 MG, QD (2 FOIS 600 MG / JOUR)
     Route: 048
     Dates: start: 20220816, end: 20220824
  4. OXCARBAZEPINE [Suspect]
     Active Substance: OXCARBAZEPINE
     Dosage: 600 MG, QD
     Route: 048
     Dates: start: 20220825, end: 20220825

REACTIONS (1)
  - Hyponatraemia [Recovered/Resolved]

NARRATIVE: CASE EVENT DATE: 20220817
